FAERS Safety Report 4646874-0 (Version None)
Quarter: 2005Q1

REPORT INFORMATION
  Report Type: 
  Country: None (occurrence: None)
  Receive Date: 20050331
  Receipt Date: 20050215
  Transmission Date: 20050727
  Serious: No
  Sender: FDA-Public Use
  Company Number: 05P-163-0291014-00

PATIENT
  Age: 81 Year
  Sex: Female
  Weight: 79.3795 kg

DRUGS (9)
  1. HUMIRA [Suspect]
     Indication: RHEUMATOID ARTHRITIS
     Dosage: 40 MG, 1 IN 2 WK, SUBCUTANEOUS
     Route: 058
     Dates: start: 20040401
  2. HYDROCHLOROTHIAZIDE [Concomitant]
  3. METOPROLOL SUCCINATE [Concomitant]
  4. LEVOTHYROXINE SODIUM [Concomitant]
  5. PANTOPRAZOLE SODIUM [Concomitant]
  6. ASPIRIN [Concomitant]
  7. BENICAR [Concomitant]
  8. ALENDRONATE SODIUM [Concomitant]
  9. CALCIUM WITH D [Concomitant]

REACTIONS (4)
  - CONDITION AGGRAVATED [None]
  - INJECTION SITE PRURITUS [None]
  - INJECTION SITE URTICARIA [None]
  - RHEUMATOID ARTHRITIS [None]
